FAERS Safety Report 5106527-1 (Version None)
Quarter: 2006Q3

REPORT INFORMATION
  Report Type: 
  Country: None (occurrence: None)
  Receive Date: 20060918
  Receipt Date: 20060906
  Transmission Date: 20061208
  Serious: Yes (Disabling)
  Sender: FDA-Public Use
  Company Number: FR-BRISTOL-MYERS SQUIBB COMPANY-13508593

PATIENT
  Age: 74 Year
  Sex: Male

DRUGS (3)
  1. HOLOXAN [Suspect]
     Indication: NON-HODGKIN'S LYMPHOMA
     Dates: start: 20060701
  2. UROMITEXAN [Suspect]
     Indication: NON-HODGKIN'S LYMPHOMA
     Dates: start: 20060701
  3. VEPESID [Suspect]
     Indication: NON-HODGKIN'S LYMPHOMA
     Dates: start: 20060701

REACTIONS (2)
  - ABNORMAL BEHAVIOUR [None]
  - ENCEPHALOPATHY [None]
